FAERS Safety Report 8429226-7 (Version None)
Quarter: 2012Q2

REPORT INFORMATION
  Report Type: 
  Country: None (occurrence: None)
  Receive Date: 20120612
  Receipt Date: 20120606
  Transmission Date: 20120825
  Serious: Yes (Other)
  Sender: FDA-Public Use
  Company Number: PHHY2011CA67378

PATIENT
  Sex: Female

DRUGS (8)
  1. AVALIDE [Concomitant]
  2. ZOLEDRONOC ACID [Suspect]
     Dosage: 5 MG / 100 ML
     Route: 042
     Dates: start: 20100628
  3. SPIRIVA [Concomitant]
  4. LIPITOR [Concomitant]
  5. ZOLEDRONOC ACID [Suspect]
     Indication: OSTEOPOROSIS
     Dosage: 5 MG / 100 ML
     Route: 042
     Dates: start: 20090601
  6. CALCIUM [Concomitant]
  7. SYNTHROID [Concomitant]
  8. ZOLEDRONOC ACID [Suspect]
     Dosage: 5 MG / 100 ML
     Route: 042
     Dates: start: 20110727

REACTIONS (4)
  - UTERINE POLYP [None]
  - DEVICE DIFFICULT TO USE [None]
  - VAGINAL POLYP [None]
  - BREAST CANCER [None]
